FAERS Safety Report 7238468-8 (Version None)
Quarter: 2011Q1

REPORT INFORMATION
  Report Type: 
  Country: None (occurrence: None)
  Receive Date: 20110119
  Receipt Date: 20110119
  Transmission Date: 20110831
  Serious: No
  Sender: FDA-Public Use
  Company Number: None

PATIENT
  Age: 73 Year
  Sex: Female
  Weight: 90.7194 kg

DRUGS (1)
  1. SIMVASTATIN [Suspect]
     Indication: BLOOD CHOLESTEROL INCREASED
     Dosage: 80 MG DAILY PO
     Route: 048

REACTIONS (5)
  - MYALGIA [None]
  - ARTHRALGIA [None]
  - MUSCULOSKELETAL PAIN [None]
  - NECK PAIN [None]
  - BACK PAIN [None]
